FAERS Safety Report 18996013 (Version 1)
Quarter: 2021Q1

REPORT INFORMATION
  Report Type: Spontaneous
  Country: FR (occurrence: FR)
  Receive Date: 20210311
  Receipt Date: 20210311
  Transmission Date: 20210420
  Serious: Yes (Hospitalization, Other)
  Sender: FDA-Public Use
  Company Number: FR-SA-2021SA067706

PATIENT
  Age: 82 Year
  Sex: Female
  Weight: 60 kg

DRUGS (11)
  1. POTASSIUM CHLORIDE. [Suspect]
     Active Substance: POTASSIUM CHLORIDE
     Dosage: 1200 MG, QD
     Route: 048
     Dates: start: 20130625, end: 20140527
  2. LEVOTHYROX [Concomitant]
     Active Substance: LEVOTHYROXINE
     Dosage: 50 ?G, UNK
  3. INEXIUM [ESOMEPRAZOLE SODIUM] [Concomitant]
     Active Substance: ESOMEPRAZOLE SODIUM
     Dosage: ENTERIC COATED TABLET
  4. CODOLIPRANE [Suspect]
     Active Substance: ACETAMINOPHEN\CODEINE PHOSPHATE
     Indication: INFLAMMATORY PAIN
     Dosage: UNK UNK, QID
     Route: 048
     Dates: start: 20140522, end: 20140526
  5. APROVEL TABS 75 MG [Suspect]
     Active Substance: IRBESARTAN
     Indication: HYPERTENSION
     Dosage: 75 MG, QD
     Route: 048
     Dates: start: 20130526, end: 20140527
  6. MORPHINE SULFATE. [Suspect]
     Active Substance: MORPHINE SULFATE
     Indication: INFLAMMATORY PAIN
     Dosage: 10 MG, QD
     Route: 048
     Dates: start: 20130526, end: 20140527
  7. KARDEGIC [Concomitant]
     Active Substance: ASPIRIN DL-LYSINE
     Dosage: POWDER FOR ORAL SOLUTION:SINGLE DOSE SACHET
  8. MORPHINE SULFATE. [Suspect]
     Active Substance: MORPHINE SULFATE
     Indication: INFLAMMATORY PAIN
     Dosage: 5 MG, QD
     Route: 048
     Dates: start: 20140527, end: 20140527
  9. DAFALGAN [Concomitant]
     Active Substance: ACETAMINOPHEN
  10. MEMANTINE HCL [Concomitant]
     Active Substance: MEMANTINE
  11. NEBIVOLOL. [Concomitant]
     Active Substance: NEBIVOLOL

REACTIONS (6)
  - Miosis [Recovered/Resolved]
  - Urinary retention [Recovered/Resolved]
  - Acute kidney injury [Recovered/Resolved]
  - Coma [Recovered/Resolved]
  - Hyperkalaemia [Recovered/Resolved]
  - Off label use [Unknown]

NARRATIVE: CASE EVENT DATE: 20140527
